FAERS Safety Report 9784030 (Version 2)
Quarter: 2013Q4

REPORT INFORMATION
  Report Type: Spontaneous
  Country: US (occurrence: US)
  Receive Date: 20131226
  Receipt Date: 20131226
  Transmission Date: 20140711
  Serious: Yes (Death, Hospitalization)
  Sender: FDA-Public Use
  Company Number: US-OTSUKA-006939

PATIENT
  Sex: Male

DRUGS (1)
  1. SAMSCA [Suspect]
     Indication: HYPONATRAEMIA
     Route: 048

REACTIONS (4)
  - Septic shock [Fatal]
  - Blood sodium increased [Unknown]
  - Medication error [Unknown]
  - Leukopenia [Unknown]
